FAERS Safety Report 6620891-3 (Version None)
Quarter: 2010Q1

REPORT INFORMATION
  Report Type: 
  Country: None (occurrence: None)
  Receive Date: 20100309
  Receipt Date: 20100301
  Transmission Date: 20100710
  Serious: Yes (Hospitalization)
  Sender: FDA-Public Use
  Company Number: GB-WATSON-2010-02443

PATIENT
  Age: 18 Month
  Sex: Female
  Weight: 11 kg

DRUGS (2)
  1. PROPRANOLOL [Suspect]
     Indication: VENTRICULAR TACHYCARDIA
     Dosage: 25 MG, TID
  2. FLECAINIDE [Concomitant]
     Indication: VENTRICULAR TACHYCARDIA
     Dosage: 20 MG, UNK

REACTIONS (2)
  - HYPOGLYCAEMIA [None]
  - SYNCOPE [None]
